FAERS Safety Report 15984787 (Version 2)
Quarter: 2019Q1

REPORT INFORMATION
  Report Type: Spontaneous
  Country: JP (occurrence: JP)
  Receive Date: 20190220
  Receipt Date: 20190228
  Transmission Date: 20190418
  Serious: Yes (Other)
  Sender: FDA-Public Use
  Company Number: JP-BAUSCH-BL-2019-005148

PATIENT
  Age: 9 Year
  Sex: Male

DRUGS (3)
  1. TALION (BEPOTASTINE BESILATE) [Suspect]
     Active Substance: BEPOTASTINE BESILATE
     Indication: UPPER RESPIRATORY TRACT INFECTION
     Route: 048
     Dates: start: 20161216, end: 20161230
  2. SINGULAIR [Suspect]
     Active Substance: MONTELUKAST SODIUM
     Indication: UPPER RESPIRATORY TRACT INFECTION
  3. SINGULAIR [Suspect]
     Active Substance: MONTELUKAST SODIUM
     Indication: NASOPHARYNGITIS
     Dosage: CHEWABLE
     Route: 048
     Dates: start: 20161212, end: 20161230

REACTIONS (1)
  - Alopecia areata [Not Recovered/Not Resolved]

NARRATIVE: CASE EVENT DATE: 201703
